FAERS Safety Report 7338479-8 (Version None)
Quarter: 2011Q1

REPORT INFORMATION
  Report Type: 
  Country: None (occurrence: None)
  Receive Date: 20110308
  Receipt Date: 20110223
  Transmission Date: 20110831
  Serious: Yes (Hospitalization)
  Sender: FDA-Public Use
  Company Number: FR-ELI_LILLY_AND_COMPANY-FR201103001433

PATIENT
  Sex: Female

DRUGS (5)
  1. CYMBALTA [Suspect]
     Dosage: 60 MG, DAILY (1/D)
     Route: 048
     Dates: start: 20091201, end: 20091204
  2. TRANSILANE [Concomitant]
     Dosage: 3 D/F, DAILY (1/D)
     Route: 048
  3. EZETROL [Concomitant]
     Dosage: 1 D/F, DAILY (1/D)
     Route: 048
  4. LYSANXIA [Concomitant]
     Dosage: 2 D/F, DAILY (1/D)
     Route: 048
     Dates: start: 20091201, end: 20091204
  5. PARAPSYLLIUM [Concomitant]
     Dosage: 1 D/F, DAILY (1/D)
     Route: 048

REACTIONS (8)
  - VERTIGO [None]
  - CONVULSION [None]
  - NECK PAIN [None]
  - CONFUSIONAL STATE [None]
  - VOMITING [None]
  - HEADACHE [None]
  - PARAESTHESIA [None]
  - ELECTROENCEPHALOGRAM ABNORMAL [None]
